FAERS Safety Report 20110289 (Version 1)
Quarter: 2021Q4

REPORT INFORMATION
  Report Type: Spontaneous
  Country: US (occurrence: US)
  Receive Date: 20211124
  Receipt Date: 20211124
  Transmission Date: 20220304
  Serious: No
  Sender: FDA-Public Use
  Company Number: US-NOVOPROD-759025

PATIENT
  Age: 75 Year
  Sex: Male
  Weight: 74.615 kg

DRUGS (19)
  1. NOVOLOG [Suspect]
     Active Substance: INSULIN ASPART
     Indication: Type 1 diabetes mellitus
     Dosage: 5 IU, QD (BEFORE EACH MEAL PLUS A SLIDING SCALE +CF60)
     Route: 058
     Dates: start: 20190710
  2. TRESIBA [Concomitant]
     Active Substance: INSULIN DEGLUDEC
     Indication: Type 1 diabetes mellitus
     Dosage: 24 IU, QD
     Route: 058
     Dates: start: 20190701
  3. LEVOTHYROXINE [Concomitant]
     Active Substance: LEVOTHYROXINE
     Indication: Product used for unknown indication
     Dosage: UNK
     Route: 065
  4. RECLAST [Concomitant]
     Active Substance: ZOLEDRONIC ACID
     Indication: Osteoporosis
     Dosage: UNK
     Route: 065
  5. PHENYTOIN [Concomitant]
     Active Substance: PHENYTOIN
     Indication: Seizure
     Dosage: 200 MG AND 300 MG ON ALETERNATE DAYS
     Route: 065
  6. VITAMIN B12 [Concomitant]
     Active Substance: CYANOCOBALAMIN
     Indication: Product used for unknown indication
     Dosage: 1000 MCG ONCE A MONTH
     Route: 030
  7. EZETIMIBE [Concomitant]
     Active Substance: EZETIMIBE
     Indication: Product used for unknown indication
     Dosage: 10 MG, QD
     Route: 048
  8. AMLODIPINE [Concomitant]
     Active Substance: AMLODIPINE BESYLATE
     Indication: Product used for unknown indication
     Dosage: 5 MG, QD
     Route: 065
  9. ASPIRIN [Concomitant]
     Active Substance: ASPIRIN
     Indication: Product used for unknown indication
     Dosage: 325 MG, QD
     Route: 065
  10. COENZYME Q10 [Concomitant]
     Active Substance: DIETARY SUPPLEMENT\UBIDECARENONE
     Indication: Product used for unknown indication
     Dosage: 200 MG, QD
     Route: 065
  11. DORZOLAMIDE + TIMOLOL [Concomitant]
     Indication: Product used for unknown indication
     Dosage: 1 DROP IN BOTH EYES 2 TIMES DAILY
     Route: 031
  12. FINASTERIDE [Concomitant]
     Active Substance: FINASTERIDE
     Indication: Product used for unknown indication
     Dosage: 5 MG, QD
     Route: 065
  13. GABAPENTIN [Concomitant]
     Active Substance: GABAPENTIN
     Indication: Product used for unknown indication
     Dosage: 300 MG
     Route: 065
  14. IRON [Concomitant]
     Active Substance: IRON
     Indication: Product used for unknown indication
     Dosage: 325 MG, QD
     Route: 065
  15. MAGNESIUM [Concomitant]
     Active Substance: MAGNESIUM
     Indication: Product used for unknown indication
     Dosage: 250 MG, QD
     Route: 065
  16. NIACIN [Concomitant]
     Active Substance: NIACIN
     Indication: Product used for unknown indication
     Dosage: 500 MG, QD
     Route: 065
  17. PAROXETINE [Concomitant]
     Active Substance: PAROXETINE
     Indication: Product used for unknown indication
     Dosage: 20 MG, QD
     Route: 065
  18. VITAMIN D NOS [Concomitant]
     Active Substance: VITAMIN D NOS
     Indication: Product used for unknown indication
     Dosage: 1.25 MG, QW
     Route: 065
  19. ZIOPTAN [Concomitant]
     Active Substance: TAFLUPROST
     Indication: Product used for unknown indication
     Dosage: INSTILL 1 DROP IN EACH EYE BEFORE BEDTIME
     Route: 031

REACTIONS (8)
  - Hypertension [Unknown]
  - Blood glucose increased [Unknown]
  - Blood glucose increased [Recovered/Resolved]
  - Incorrect dose administered by device [Unknown]
  - Device malfunction [Unknown]
  - Device issue [Unknown]
  - Hypoglycaemia unawareness [Recovered/Resolved]
  - Liquid product physical issue [Unknown]

NARRATIVE: CASE EVENT DATE: 20210412
